FAERS Safety Report 6089438-7 (Version None)
Quarter: 2009Q1

REPORT INFORMATION
  Report Type: 
  Country: None (occurrence: None)
  Receive Date: 20090220
  Receipt Date: 20090220
  Transmission Date: 20090719
  Serious: Yes (Life-Threatening, Hospitalization, Disabling)
  Sender: FDA-Public Use
  Company Number: None

PATIENT
  Sex: Male
  Weight: 10.4 kg

DRUGS (1)
  1. CETIRIZINE [Suspect]
     Indication: SINUS CONGESTION
     Dosage: 3/4 TEASPOON ONCE PER DAY PO
     Route: 048
     Dates: start: 20090203, end: 20090212

REACTIONS (9)
  - BAND NEUTROPHIL COUNT DECREASED [None]
  - BODY TEMPERATURE INCREASED [None]
  - GRAND MAL CONVULSION [None]
  - HAEMATOCRIT DECREASED [None]
  - HEART RATE INCREASED [None]
  - INFUSION SITE EXTRAVASATION [None]
  - LYMPHOCYTE COUNT INCREASED [None]
  - MONOCYTE COUNT INCREASED [None]
  - RESPIRATORY RATE DECREASED [None]
